FAERS Safety Report 5788982-7 (Version None)
Quarter: 2008Q2

REPORT INFORMATION
  Report Type: 
  Country: None (occurrence: None)
  Receive Date: 20080626
  Receipt Date: 20080617
  Transmission Date: 20081010
  Serious: Yes (Death, Life-Threatening, Other)
  Sender: FDA-Public Use
  Company Number: GB-JNJFOC-20080201865

PATIENT
  Sex: Female
  Weight: 65 kg

DRUGS (8)
  1. REMICADE [Suspect]
     Indication: RHEUMATOID ARTHRITIS
     Route: 042
  2. SULFASALAZINE [Concomitant]
  3. METHOTREXATE [Concomitant]
  4. PREDNISOLONE [Concomitant]
  5. CALCICHEW D3 FORTE [Concomitant]
  6. FOLIC ACID [Concomitant]
  7. FOSAMAX [Concomitant]
  8. HYDROXYCHLOROQUINE SULFATE [Concomitant]

REACTIONS (1)
  - COLON CANCER METASTATIC [None]
